FAERS Safety Report 12633825 (Version 2)
Quarter: 2016Q3

REPORT INFORMATION
  Report Type: Spontaneous
  Country: BR (occurrence: BR)
  Receive Date: 20160809
  Receipt Date: 20160811
  Transmission Date: 20161109
  Serious: Yes (Life-Threatening, Hospitalization)
  Sender: FDA-Public Use
  Company Number: BR-BAYER-2016-151502

PATIENT
  Age: 23 Year
  Sex: Female

DRUGS (8)
  1. MIRENA [Suspect]
     Active Substance: LEVONORGESTREL
     Indication: CONTRACEPTION
     Dosage: 20 MCG/24HR, CONT
     Route: 015
     Dates: start: 20111125
  2. MATERNA [FOLIC ACID,IRON,MINERALS NOS,VITAMINS NOS] [Concomitant]
     Dosage: 1 DF, QD
     Route: 048
  3. PROFLAM [Concomitant]
     Dosage: 100 MG, BID
  4. NOVALGIN [Concomitant]
     Active Substance: METAMIZOLE SODIUM
     Indication: PAIN
     Dosage: 1 G, QID, PRN
     Route: 048
  5. LEVOFLOXACIN. [Concomitant]
     Active Substance: LEVOFLOXACIN
     Dosage: 500 MG, QD
     Route: 048
  6. CEFALEXIN [Concomitant]
     Active Substance: CEPHALEXIN
     Dosage: 500 MG, QID
     Route: 048
  7. FELDENE [Concomitant]
     Active Substance: PIROXICAM
     Dosage: 1 DF, BID
     Route: 048
  8. FERROUS SULFATE. [Concomitant]
     Active Substance: FERROUS SULFATE
     Dosage: 2 DF, BID
     Route: 048

REACTIONS (6)
  - Intra-abdominal haemorrhage [None]
  - Abdominal pain [Recovered/Resolved]
  - Abdominal distension [Recovered/Resolved]
  - Haemorrhagic anaemia [None]
  - Drug ineffective [None]
  - Ectopic pregnancy with contraceptive device [Recovered/Resolved]

NARRATIVE: CASE EVENT DATE: 20130622
